FAERS Safety Report 21131788 (Version 1)
Quarter: 2022Q3

REPORT INFORMATION
  Report Type: Spontaneous
  Country: AU (occurrence: AU)
  Receive Date: 20220726
  Receipt Date: 20220726
  Transmission Date: 20221027
  Serious: Yes (Other)
  Sender: FDA-Public Use
  Company Number: AU-SA-2022SA282281

PATIENT
  Age: 68 Year
  Sex: Male

DRUGS (1)
  1. AFLIBERCEPT [Suspect]
     Active Substance: AFLIBERCEPT
     Indication: Diabetic retinal oedema
     Dosage: UNK
     Route: 031

REACTIONS (7)
  - Neuritis cranial [Unknown]
  - Facial paralysis [Unknown]
  - Lagophthalmos [Unknown]
  - Headache [Unknown]
  - Dysphagia [Unknown]
  - Hypoaesthesia [Unknown]
  - Muscular weakness [Unknown]
